FAERS Safety Report 6089334-5 (Version None)
Quarter: 2009Q1

REPORT INFORMATION
  Report Type: 
  Country: None (occurrence: None)
  Receive Date: 20090224
  Receipt Date: 20090216
  Transmission Date: 20090719
  Serious: Yes (Other)
  Sender: FDA-Public Use
  Company Number: PHHY2009FR05637

PATIENT
  Age: 83 Year
  Sex: Female
  Weight: 60 kg

DRUGS (1)
  1. AREDIA [Suspect]
     Indication: FRACTURE
     Dosage: UNK
     Route: 042
     Dates: start: 20020101

REACTIONS (1)
  - HYPOGLYCAEMIA [None]
